FAERS Safety Report 7319019-6 (Version None)
Quarter: 2011Q1

REPORT INFORMATION
  Report Type: 
  Country: None (occurrence: None)
  Receive Date: 20110228
  Receipt Date: 20110225
  Transmission Date: 20110831
  Serious: Yes (Other)
  Sender: FDA-Public Use
  Company Number: US-PFIZER INC-2011041914

PATIENT
  Sex: Female
  Weight: 99.773 kg

DRUGS (2)
  1. CELEBREX [Suspect]
     Indication: ARTHRITIS
     Dosage: 400 MG, 1X/DAY
     Route: 048
     Dates: end: 20110128
  2. SEPTRA DS [Concomitant]
     Indication: INFECTION
     Dosage: UNK
     Route: 048

REACTIONS (2)
  - SWELLING [None]
  - HYPERSENSITIVITY [None]
